FAERS Safety Report 6424347-2 (Version None)
Quarter: 2009Q4

REPORT INFORMATION
  Report Type: 
  Country: None (occurrence: None)
  Receive Date: 20091103
  Receipt Date: 20091026
  Transmission Date: 20100525
  Serious: Yes (Hospitalization)
  Sender: FDA-Public Use
  Company Number: US-BIOGENIDEC-2009BI034982

PATIENT
  Age: 44 Year
  Sex: Female

DRUGS (2)
  1. TYSABRI [Suspect]
     Indication: MULTIPLE SCLEROSIS
     Route: 042
     Dates: start: 20070208, end: 20070301
  2. TYSABRI [Suspect]
     Route: 042
     Dates: start: 20070427

REACTIONS (4)
  - ACCIDENT AT HOME [None]
  - ADVERSE DRUG REACTION [None]
  - CRANIAL NERVE DISORDER [None]
  - MIGRAINE [None]
